FAERS Safety Report 19643835 (Version 3)
Quarter: 2021Q4

REPORT INFORMATION
  Report Type: Report from Study
  Country: BR (occurrence: BR)
  Receive Date: 20210730
  Receipt Date: 20211007
  Transmission Date: 20220303
  Serious: Yes (Other)
  Sender: FDA-Public Use
  Company Number: NVSC2021BR169730

PATIENT
  Age: 66 Year
  Sex: Female

DRUGS (9)
  1. ZOMETA [Suspect]
     Active Substance: ZOLEDRONIC ACID
     Indication: Product used for unknown indication
     Dosage: UNK
     Route: 065
  2. FULVESTRANT [Suspect]
     Active Substance: FULVESTRANT
     Indication: Aromatase inhibition therapy
     Dosage: UNK
     Route: 065
     Dates: start: 2019
  3. FULVESTRANT [Suspect]
     Active Substance: FULVESTRANT
     Dosage: UNK
     Route: 065
     Dates: start: 20210925
  4. ANASTROZOLE [Suspect]
     Active Substance: ANASTROZOLE
     Indication: Product used for unknown indication
     Route: 065
  5. SYSTANE (HYPROMELLOSE 2910 (4000 MPA.S)) [Suspect]
     Active Substance: HYPROMELLOSE 2910 (4000 MPA.S)
     Indication: Dry eye
     Dosage: UNK, TID
     Route: 065
  6. TAMOXIFEN [Concomitant]
     Active Substance: TAMOXIFEN
     Indication: Product used for unknown indication
     Dosage: UNK
     Route: 065
  7. LORATADINE [Concomitant]
     Active Substance: LORATADINE
     Indication: Rhinitis
     Dosage: UNK
     Route: 065
  8. LORATADINE [Concomitant]
     Active Substance: LORATADINE
     Indication: Antiallergic therapy
  9. EXEMESTANE [Concomitant]
     Active Substance: EXEMESTANE
     Indication: Product used for unknown indication
     Dosage: UNK
     Route: 065

REACTIONS (43)
  - Vulvovaginal injury [Unknown]
  - Metastases to bone [Unknown]
  - Spinal pain [Recovering/Resolving]
  - Injury [Unknown]
  - Skin fissures [Recovering/Resolving]
  - Dry skin [Not Recovered/Not Resolved]
  - Skin exfoliation [Recovering/Resolving]
  - Nasal dryness [Unknown]
  - Alopecia [Not Recovered/Not Resolved]
  - Rhinitis [Unknown]
  - Haematoma [Recovering/Resolving]
  - Skin atrophy [Unknown]
  - Hypersensitivity [Unknown]
  - Vulvovaginal dryness [Unknown]
  - Haemorrhoids [Unknown]
  - Vascular rupture [Unknown]
  - Fatigue [Unknown]
  - Erythema [Unknown]
  - Peripheral swelling [Recovering/Resolving]
  - Application site discolouration [Recovering/Resolving]
  - Pain in extremity [Not Recovered/Not Resolved]
  - Movement disorder [Unknown]
  - Arthralgia [Unknown]
  - Muscular weakness [Unknown]
  - Stress [Unknown]
  - Petechiae [Unknown]
  - Pruritus [Unknown]
  - Dry throat [Unknown]
  - Onychoclasis [Not Recovered/Not Resolved]
  - Nasal mucosal disorder [Unknown]
  - Epistaxis [Recovered/Resolved]
  - Rhinalgia [Unknown]
  - Insomnia [Unknown]
  - Throat irritation [Unknown]
  - Pain [Unknown]
  - Hair texture abnormal [Unknown]
  - Breast disorder [Unknown]
  - Calcification metastatic [Unknown]
  - Cell marker increased [Unknown]
  - Cytogenetic abnormality [Unknown]
  - General physical condition abnormal [Unknown]
  - Weight increased [Unknown]
  - Drug ineffective [Unknown]

NARRATIVE: CASE EVENT DATE: 20150101
